FAERS Safety Report 17559915 (Version 3)
Quarter: 2020Q2

REPORT INFORMATION
  Report Type: Spontaneous
  Country: IN (occurrence: IN)
  Receive Date: 20200319
  Receipt Date: 20200511
  Transmission Date: 20200713
  Serious: Yes (Life-Threatening, Hospitalization, Other)
  Sender: FDA-Public Use
  Company Number: IN-ACCORD-176283

PATIENT
  Age: 49 Year
  Sex: Male

DRUGS (4)
  1. FOLINIC ACID [Suspect]
     Active Substance: LEUCOVORIN
     Indication: RECTAL ADENOCARCINOMA
     Dosage: FOLINIC ACID IV PUSH 800 MG D1 AND D15 FOR 6 CYCLES
     Route: 042
     Dates: start: 20160620, end: 20170527
  2. CAPECITABINE. [Suspect]
     Active Substance: CAPECITABINE
     Indication: RECTAL ADENOCARCINOMA
     Dates: start: 20160927, end: 20161105
  3. FLUOROURACIL. [Suspect]
     Active Substance: FLUOROURACIL
     Indication: RECTAL ADENOCARCINOMA
     Dosage: 5-FU 800 MG IV BOLUS FOLLOWED BY 4800 MG IV OVER 46 HOURS D1 AND D 15 FOR 6 CYCLES
     Route: 042
     Dates: start: 20160620, end: 20170527
  4. OXALIPLATIN. [Suspect]
     Active Substance: OXALIPLATIN
     Indication: RECTAL ADENOCARCINOMA
     Dosage: OXALIPLATIN 150 MG IV D1 AND D15 FOR 6 CYCLES
     Dates: start: 20160620, end: 20170527

REACTIONS (1)
  - Granulomatous liver disease [Recovering/Resolving]

NARRATIVE: CASE EVENT DATE: 20190227
